FAERS Safety Report 15613124 (Version 1)
Quarter: 2018Q4

REPORT INFORMATION
  Report Type: Spontaneous
  Country: DE (occurrence: DE)
  Receive Date: 20181113
  Receipt Date: 20181113
  Transmission Date: 20190205
  Serious: Yes (Other)
  Sender: FDA-Public Use
  Company Number: PHHY2018DE151151

PATIENT
  Age: 75 Year
  Sex: Female

DRUGS (6)
  1. TEGRETAL RETARD [Suspect]
     Active Substance: CARBAMAZEPINE
     Indication: BIPOLAR DISORDER
     Dosage: 200 MG, QD
     Route: 065
     Dates: start: 201803
  2. L-THYROXIN [Concomitant]
     Active Substance: LEVOTHYROXINE SODIUM
     Indication: PRODUCT USED FOR UNKNOWN INDICATION
     Dosage: UNK
     Route: 065
  3. TEGRETAL RETARD [Suspect]
     Active Substance: CARBAMAZEPINE
     Dosage: 200 MG, QD
     Route: 065
  4. TEGRETAL RETARD [Suspect]
     Active Substance: CARBAMAZEPINE
     Dosage: 300 MG, QD (MORNING 0.5 DF ANND EVENING 1 DF)
     Route: 065
  5. TEGRETAL RETARD [Suspect]
     Active Substance: CARBAMAZEPINE
     Dosage: 300 MG, QD (EVENING)
     Route: 065
  6. TEGRETAL RETARD [Suspect]
     Active Substance: CARBAMAZEPINE
     Dosage: 200 MG, QD
     Route: 065

REACTIONS (7)
  - Vertigo [Unknown]
  - Injury [Unknown]
  - Loss of consciousness [Unknown]
  - Malaise [Unknown]
  - Nausea [Unknown]
  - Thinking abnormal [Unknown]
  - Vomiting [Unknown]
